FAERS Safety Report 8848286 (Version 1)
Quarter: 2012Q4

REPORT INFORMATION
  Report Type: 
  Country: BE (occurrence: BE)
  Receive Date: 20121018
  Receipt Date: 20121018
  Transmission Date: 20130627
  Serious: Yes (Other)
  Sender: FDA-Public Use
  Company Number: BE-ASTRAZENECA-2012SE78395

PATIENT
  Age: 50 Year
  Sex: Male

DRUGS (3)
  1. SEROQUEL XR [Suspect]
     Indication: BIPOLAR DISORDER
     Route: 048
     Dates: start: 2012
  2. SERLAIN [Concomitant]
  3. TRAMADOL [Concomitant]

REACTIONS (1)
  - Cognitive disorder [Not Recovered/Not Resolved]
